FAERS Safety Report 12908076 (Version 1)
Quarter: 2016Q4

REPORT INFORMATION
  Report Type: Spontaneous
  Country: US (occurrence: US)
  Receive Date: 20161103
  Receipt Date: 20161103
  Transmission Date: 20170207
  Serious: No
  Sender: FDA-Public Use
  Company Number: US-PERRIGO-16US020022

PATIENT
  Age: 49 Year
  Sex: Male
  Weight: 71.66 kg

DRUGS (2)
  1. MESALAZINE [Suspect]
     Active Substance: MESALAMINE
     Indication: COLITIS ULCERATIVE
     Dosage: 4 G, EVERY NIGHT
     Route: 054
     Dates: start: 20160724
  2. UCERIS [Concomitant]
     Active Substance: BUDESONIDE
     Indication: COLITIS ULCERATIVE
     Dosage: UNK
     Route: 065
     Dates: start: 20160826

REACTIONS (1)
  - Drug ineffective [Unknown]

NARRATIVE: CASE EVENT DATE: 20160724
